FAERS Safety Report 9304025 (Version 4)
Quarter: 2013Q4

REPORT INFORMATION
  Report Type: Report from Study
  Country: BR (occurrence: BR)
  Receive Date: 20130522
  Receipt Date: 20131023
  Transmission Date: 20140711
  Serious: Yes (Life-Threatening, Hospitalization, Other)
  Sender: FDA-Public Use
  Company Number: BR-ROCHE-1225153

PATIENT
  Age: 53 Year
  Sex: Female
  Weight: 92 kg

DRUGS (16)
  1. XOLAIR [Suspect]
     Indication: ASTHMA
     Dosage: 150 MCG
     Route: 058
  2. AEROLIN [Suspect]
     Indication: DYSPNOEA
     Route: 065
  3. SALMETEROL [Concomitant]
     Dosage: 50/500
     Route: 065
  4. SPIRIVA [Concomitant]
  5. BUDESONIDE [Concomitant]
     Route: 065
  6. SALBUTAMOL [Concomitant]
     Route: 065
     Dates: start: 201210
  7. MOTILIUM-M [Concomitant]
  8. OMEPRAZOLE [Concomitant]
  9. METICORTEN [Concomitant]
  10. BAMIFIX [Concomitant]
     Route: 065
     Dates: start: 201207
  11. FLUIMUCIL (ACETYLCYSTEINE) [Concomitant]
     Route: 065
     Dates: start: 20121218
  12. SINGULAIR [Concomitant]
     Route: 065
     Dates: start: 201207
  13. INDACATEROL MALEATE [Concomitant]
  14. SERETIDE [Concomitant]
  15. PREDNISONE [Concomitant]
  16. ONBREZ [Concomitant]

REACTIONS (19)
  - Feeling abnormal [Not Recovered/Not Resolved]
  - Asthma [Recovered/Resolved]
  - Bronchiectasis [Not Recovered/Not Resolved]
  - Goitre [Not Recovered/Not Resolved]
  - Arrhythmia [Not Recovered/Not Resolved]
  - Rheumatic disorder [Not Recovered/Not Resolved]
  - Dyspnoea [Not Recovered/Not Resolved]
  - Blood pressure abnormal [Not Recovered/Not Resolved]
  - Hypertension [Not Recovered/Not Resolved]
  - Tuberculosis [Recovered/Resolved]
  - Cough [Not Recovered/Not Resolved]
  - Speech disorder [Not Recovered/Not Resolved]
  - General physical health deterioration [Unknown]
  - Arthralgia [Not Recovered/Not Resolved]
  - Fatigue [Not Recovered/Not Resolved]
  - Bone atrophy [Not Recovered/Not Resolved]
  - Malaise [Not Recovered/Not Resolved]
  - Cyanosis [Recovered/Resolved]
  - Weight increased [Not Recovered/Not Resolved]
